FAERS Safety Report 6911790-8 (Version None)
Quarter: 2010Q3

REPORT INFORMATION
  Report Type: 
  Country: None (occurrence: None)
  Receive Date: 20100806
  Receipt Date: 20070821
  Transmission Date: 20110219
  Serious: No
  Sender: FDA-Public Use
  Company Number: US-PFIZER INC-2007069509

PATIENT
  Sex: Female

DRUGS (4)
  1. DETROL LA [Suspect]
  2. VESICARE [Concomitant]
  3. DITROPAN [Concomitant]
  4. DARIFENACIN [Concomitant]

REACTIONS (1)
  - CONSTIPATION [None]
